FAERS Safety Report 22967934 (Version 2)
Quarter: 2023Q4

REPORT INFORMATION
  Report Type: Report from Study
  Country: US (occurrence: US)
  Receive Date: 20230921
  Receipt Date: 20231218
  Transmission Date: 20240110
  Serious: Yes (Other)
  Sender: FDA-Public Use
  Company Number: US-ABBVIE-5413229

PATIENT
  Sex: Female

DRUGS (1)
  1. HUMIRA [Suspect]
     Active Substance: ADALIMUMAB
     Indication: Crohn^s disease
     Dosage: FORM STRENGTH: 40 MILLIGRAM?CITRATE FREE
     Route: 058

REACTIONS (6)
  - Skin papilloma [Recovered/Resolved]
  - Illness [Unknown]
  - Skin disorder [Unknown]
  - Skin papilloma [Unknown]
  - Acrochordon [Unknown]
  - Crohn^s disease [Unknown]
